FAERS Safety Report 12171776 (Version 8)
Quarter: 2018Q4

REPORT INFORMATION
  Report Type: Spontaneous
  Country: US (occurrence: US)
  Receive Date: 20160311
  Receipt Date: 20181001
  Transmission Date: 20190204
  Serious: Yes (Hospitalization, Other)
  Sender: FDA-Public Use
  Company Number: US-PFIZER INC-2016147569

PATIENT
  Age: 76 Year
  Sex: Female
  Weight: 88 kg

DRUGS (29)
  1. LYRICA [Suspect]
     Active Substance: PREGABALIN
     Indication: LUMBAR SPINAL STENOSIS
  2. RANEXA [Concomitant]
     Active Substance: RANOLAZINE
     Dosage: 500 MG, 2X/DAY
  3. PRAVASTATIN. [Concomitant]
     Active Substance: PRAVASTATIN
     Dosage: 90 MG, ONCE DAILY (AT BEDTIME)
     Dates: start: 2008
  4. BENAZEPRIL [Concomitant]
     Active Substance: BENAZEPRIL HYDROCHLORIDE
     Dosage: 20 MG, ONCE DAILY
  5. LYRICA [Suspect]
     Active Substance: PREGABALIN
     Indication: PAIN IN EXTREMITY
     Dosage: 75 MG, THRICE DAILY
     Route: 048
     Dates: start: 2005
  6. ASPIRIN (E.C.) [Concomitant]
     Active Substance: ASPIRIN
     Dosage: UNK
  7. METHOCARBAMOL. [Concomitant]
     Active Substance: METHOCARBAMOL
     Indication: BLADDER SPASM
     Dosage: 375 MG TO 750 MG (1/2 TO 1 TABLET), AS NEEDED (FOUR TIMES DAILY)
  8. IODOSORB [Concomitant]
     Active Substance: CADEXOMER IODINE
     Dosage: 600 MG, ONCE DAILY
     Dates: start: 2010
  9. SOTALOL. [Concomitant]
     Active Substance: SOTALOL
     Dosage: 40 MG, TWICE DAILY (EVERY 12 HOURS)
  10. METOPROLOL. [Concomitant]
     Active Substance: METOPROLOL
     Dosage: UNK
     Dates: start: 1999
  11. BABY ASPIRIN [Concomitant]
     Active Substance: ASPIRIN
     Dosage: UNK
     Dates: start: 1999
  12. FLOMAX [Concomitant]
     Active Substance: TAMSULOSIN HYDROCHLORIDE
     Dosage: 0.4 UNK, ONCE DAILY
  13. TRAMADOL. [Concomitant]
     Active Substance: TRAMADOL
     Dosage: 50 MG, AS NEEDED (TWICE DAILY)
  14. NITROSTAT [Concomitant]
     Active Substance: NITROGLYCERIN
     Dosage: 0.4 MG, AS NEEDED (3 UNDER TONGUE)
     Route: 060
  15. CLOPIDOGREL [Concomitant]
     Active Substance: CLOPIDOGREL BISULFATE
     Dosage: UNK
     Dates: start: 2010
  16. DIAZEPAM. [Concomitant]
     Active Substance: DIAZEPAM
     Dosage: 1 MG TO 2 MG (1/2 TO 1 TABLET), AS NEEDED
  17. CIPROFLOXACIN. [Concomitant]
     Active Substance: CIPROFLOXACIN
     Dosage: 500 MG, AS NEEDED (TWICE DAILY)
  18. PROTONIX [Concomitant]
     Active Substance: PANTOPRAZOLE SODIUM
     Indication: PROPHYLAXIS AGAINST GASTROINTESTINAL ULCER
     Dosage: 40 MG, ONCE DAILY
     Dates: start: 2010
  19. POTASSIUM CHLORIDE. [Concomitant]
     Active Substance: POTASSIUM CHLORIDE
     Dosage: 10 MG, ONCE DAILY
     Dates: start: 2010
  20. CALCIUM W/VITAMIN D3 [Concomitant]
     Active Substance: CALCIUM\CHOLECALCIFEROL
     Dosage: 600 MG, ONCE DAILY
  21. FUROSEMIDE. [Concomitant]
     Active Substance: FUROSEMIDE
     Dosage: 80 MG, ONCE DAILY
  22. MIRALAX [Concomitant]
     Active Substance: POLYETHYLENE GLYCOL 3350
     Dosage: UNK
  23. LYRICA [Suspect]
     Active Substance: PREGABALIN
     Indication: NEUROPATHY PERIPHERAL
  24. LYRICA [Suspect]
     Active Substance: PREGABALIN
     Indication: SPINAL FUSION SURGERY
  25. CLOPIDOGREL [Concomitant]
     Active Substance: CLOPIDOGREL BISULFATE
     Dosage: 75 MG, DAILY
  26. TAMSULOSIN HCL [Concomitant]
     Active Substance: TAMSULOSIN HYDROCHLORIDE
     Indication: BLADDER DISORDER
     Dosage: 0.4 MG, ONCE DAILY
     Dates: start: 2010
  27. RANEXA [Concomitant]
     Active Substance: RANOLAZINE
     Indication: CARDIAC DISORDER
     Dosage: UNK
     Dates: start: 2011
  28. ALLOPURINOL. [Concomitant]
     Active Substance: ALLOPURINOL
     Dosage: 30 MG, ONCE DAILY
  29. XARELTO [Concomitant]
     Active Substance: RIVAROXABAN
     Dosage: 20 MG, ONCE DAILY (WITH DINNER)

REACTIONS (4)
  - Fall [Recovered/Resolved]
  - Arthropathy [Not Recovered/Not Resolved]
  - Hypoacusis [Unknown]
  - Femur fracture [Recovered/Resolved]

NARRATIVE: CASE EVENT DATE: 2013
